FAERS Safety Report 8215823-0 (Version None)
Quarter: 2012Q1

REPORT INFORMATION
  Report Type: 
  Country: None (occurrence: None)
  Receive Date: 20120316
  Receipt Date: 20120309
  Transmission Date: 20120608
  Serious: Yes (Hospitalization)
  Sender: FDA-Public Use
  Company Number: US-GLAXOSMITHKLINE-A0965059A

PATIENT
  Age: 62 Year
  Sex: Female
  Weight: 81.7 kg

DRUGS (17)
  1. ARZERRA [Suspect]
     Indication: CHRONIC LYMPHOCYTIC LEUKAEMIA
     Dosage: 300MG WEEKLY
     Route: 042
     Dates: start: 20111102, end: 20120110
  2. POTASSIUM CHLORIDE [Concomitant]
  3. AZITHROMYCIN [Concomitant]
  4. VENLAFAXINE [Concomitant]
  5. COMPAZINE [Concomitant]
  6. ZOMIG [Concomitant]
  7. AMBIEN [Concomitant]
  8. LEVAQUIN [Concomitant]
  9. LOPERAMIDE [Concomitant]
  10. ATENOLOL [Concomitant]
  11. CLONAZEPAM [Concomitant]
  12. GABAPENTIN [Concomitant]
  13. MEPRON [Concomitant]
  14. LORAZEPAM [Concomitant]
  15. VESICARE [Concomitant]
  16. BENADRYL [Concomitant]
  17. FERROUS GLUCONATE [Concomitant]

REACTIONS (2)
  - HYPOXIA [None]
  - PNEUMONIA VIRAL [None]
